FAERS Safety Report 5897324-8 (Version None)
Quarter: 2008Q3

REPORT INFORMATION
  Report Type: 
  Country: None (occurrence: None)
  Receive Date: 20080911
  Receipt Date: 20080529
  Transmission Date: 20090109
  Serious: Yes (Hospitalization)
  Sender: FDA-Public Use
  Company Number: ZYD-AE-08-073

PATIENT
  Sex: Male

DRUGS (7)
  1. WARFARIN SODIUM [Suspect]
     Indication: HEART RATE IRREGULAR
     Dosage: 5MG - DAILY - ORAL
     Route: 048
     Dates: end: 20080411
  2. WARFARIN SODIUM [Suspect]
     Indication: HEART RATE IRREGULAR
     Dosage: 7.5MG-ONCE A WEEK-ORAL
     Route: 048
     Dates: end: 20080411
  3. COZAAR [Concomitant]
  4. ZOCOR [Concomitant]
  5. SPIRONOLACTONE [Concomitant]
  6. TOPROL-XL [Concomitant]
  7. IRON [Concomitant]

REACTIONS (3)
  - DYSPNOEA [None]
  - INTERNATIONAL NORMALISED RATIO INCREASED [None]
  - PULMONARY HAEMORRHAGE [None]
